FAERS Safety Report 14533405 (Version 6)
Quarter: 2020Q1

REPORT INFORMATION
  Report Type: Report from Study
  Country: None (occurrence: CA)
  Receive Date: 20180215
  Receipt Date: 20200130
  Transmission Date: 20200409
  Serious: Yes (Hospitalization, Other)
  Sender: FDA-Public Use
  Company Number: CA-ABBVIE-17K-028-2126577-00

PATIENT
  Age: 79 Year
  Sex: Female

DRUGS (5)
  1. DILANTIN [Suspect]
     Active Substance: PHENYTOIN
     Indication: PAIN MANAGEMENT
     Route: 065
  2. HUMIRA [Suspect]
     Active Substance: ADALIMUMAB
     Indication: RHEUMATOID ARTHRITIS
     Route: 058
     Dates: start: 20050818, end: 20171009
  3. OXYCONTIN [Suspect]
     Active Substance: OXYCODONE HYDROCHLORIDE
     Indication: PAIN MANAGEMENT
     Route: 065
  4. HUMIRA [Suspect]
     Active Substance: ADALIMUMAB
     Route: 058
  5. HUMIRA [Suspect]
     Active Substance: ADALIMUMAB
     Route: 058
     Dates: end: 20191122

REACTIONS (19)
  - Fall [Recovered/Resolved]
  - Tooth fracture [Not Recovered/Not Resolved]
  - Post procedural infection [Recovering/Resolving]
  - Device loosening [Recovering/Resolving]
  - Medical device site pain [Recovering/Resolving]
  - Joint injury [Unknown]
  - Groin pain [Recovering/Resolving]
  - Arthralgia [Not Recovered/Not Resolved]
  - Pelvic fracture [Recovering/Resolving]
  - Osteonecrosis [Recovering/Resolving]
  - Mouth injury [Unknown]
  - Joint arthroplasty [Unknown]
  - Gait inability [Not Recovered/Not Resolved]
  - Tooth disorder [Not Recovered/Not Resolved]
  - Post procedural infection [Unknown]
  - Hip fracture [Recovering/Resolving]
  - Blood pressure increased [Not Recovered/Not Resolved]
  - Shoulder arthroplasty [Unknown]
  - Injury associated with device [Recovering/Resolving]

NARRATIVE: CASE EVENT DATE: 201709
